FAERS Safety Report 9459444 (Version 1)
Quarter: 2013Q3

REPORT INFORMATION
  Report Type: Spontaneous
  Country: FR (occurrence: FR)
  Receive Date: 20130815
  Receipt Date: 20130815
  Transmission Date: 20140515
  Serious: Yes (Hospitalization)
  Sender: FDA-Public Use
  Company Number: PHHY2013FR087809

PATIENT
  Age: 86 Year
  Sex: Female

DRUGS (10)
  1. RASILEZ [Suspect]
     Indication: HYPERTENSION
     Dosage: 300 MG, UNK
     Route: 048
     Dates: end: 20130722
  2. FLUDEX [Suspect]
     Indication: HYPERTENSION
     Dosage: 2.5 MG, UNK
     Route: 048
     Dates: end: 20130722
  3. ALPRESS [Concomitant]
  4. DAFALGAN [Concomitant]
  5. LEXOMIL [Concomitant]
  6. HYDERGINE [Concomitant]
  7. INSULATARD [Concomitant]
  8. NOVOMIX [Concomitant]
  9. CALCIDOSE [Concomitant]
  10. RILMENIDINE [Concomitant]

REACTIONS (2)
  - Hyponatraemia [Recovering/Resolving]
  - Dizziness [Recovered/Resolved]
